FAERS Safety Report 23959134 (Version 1)
Quarter: 2024Q2

REPORT INFORMATION
  Report Type: Report from Study
  Country: US (occurrence: US)
  Receive Date: 20240611
  Receipt Date: 20240611
  Transmission Date: 20240717
  Serious: Yes (Hospitalization)
  Sender: FDA-Public Use
  Company Number: US-ENDO USA, INC.-2024-002417

PATIENT

DRUGS (5)
  1. PREDNISONE [Suspect]
     Active Substance: PREDNISONE
     Indication: Colitis
     Dosage: 1 MILLIGRAM/KILOGRAM, UNKNOWN
     Route: 065
     Dates: start: 20240515
  2. AVELUMAB [Concomitant]
     Active Substance: AVELUMAB
     Indication: Product used for unknown indication
     Dosage: UNK UNKNOWN, UNKNOWN (DAY 1 AND 15 OF A 28 DAY CYCLE)
     Route: 042
     Dates: start: 20240131, end: 20240501
  3. SACITUZUMAB GOVITECAN [Concomitant]
     Active Substance: SACITUZUMAB GOVITECAN
     Indication: Product used for unknown indication
     Dosage: UNK UNKNOWN, UNKNOWN (DAY 1 AND 8 Q21 DAYS)
     Route: 042
     Dates: start: 20240118, end: 20240508
  4. LOPERAMIDE HYDROCHLORIDE [Concomitant]
     Active Substance: LOPERAMIDE HYDROCHLORIDE
     Indication: Diarrhoea
     Dosage: UNK UNKNOWN, QID
     Route: 065
     Dates: start: 20240509
  5. IMODIUM [Concomitant]
     Active Substance: LOPERAMIDE HYDROCHLORIDE
     Indication: Diarrhoea
     Dosage: UNK UNKNOWN, UNKNOWN
     Route: 065
     Dates: start: 20240513

REACTIONS (2)
  - Colitis [Not Recovered/Not Resolved]
  - Asthenia [Not Recovered/Not Resolved]

NARRATIVE: CASE EVENT DATE: 20240518
